FAERS Safety Report 5510468-5 (Version None)
Quarter: 2007Q4

REPORT INFORMATION
  Report Type: 
  Country: None (occurrence: None)
  Receive Date: 20071108
  Receipt Date: 20071029
  Transmission Date: 20080405
  Serious: Yes (Hospitalization, Other)
  Sender: FDA-Public Use
  Company Number: FR-PFIZER INC-2007091465

PATIENT
  Age: 47 Year
  Sex: Female

DRUGS (5)
  1. LYRICA [Suspect]
     Indication: GENERALISED ANXIETY DISORDER
  2. MEPRONIZINE [Concomitant]
  3. LEXOMIL [Concomitant]
  4. PAROXETINE MESILATE [Concomitant]
  5. RIVOTRIL [Concomitant]

REACTIONS (2)
  - DEPRESSED LEVEL OF CONSCIOUSNESS [None]
  - OVERDOSE [None]
